FAERS Safety Report 5077380-X (Version None)
Quarter: 2006Q3

REPORT INFORMATION
  Report Type: 
  Country: None (occurrence: None)
  Receive Date: 20060810
  Receipt Date: 20060207
  Transmission Date: 20061208
  Serious: No
  Sender: FDA-Public Use
  Company Number: US-GLAXOSMITHKLINE-A0592671A

PATIENT
  Age: 45 Year
  Sex: Female

DRUGS (1)
  1. PAXIL [Suspect]
     Indication: DEPRESSION
     Dosage: 50MG UNKNOWN
     Route: 048
     Dates: end: 20050601

REACTIONS (5)
  - DEPRESSION [None]
  - DIZZINESS [None]
  - HOT FLUSH [None]
  - NERVOUSNESS [None]
  - SOMNOLENCE [None]
